FAERS Safety Report 6242875-X (Version None)
Quarter: 2009Q2

REPORT INFORMATION
  Report Type: 
  Country: None (occurrence: None)
  Receive Date: 20090624
  Receipt Date: 20090618
  Transmission Date: 20091009
  Serious: No
  Sender: FDA-Public Use
  Company Number: US-B.I. PHARMACEUTICALS,INC./RIDGEFIELD-2009-BP-07435BP

PATIENT
  Sex: Female

DRUGS (1)
  1. MOBIC [Suspect]
     Indication: ARTHRALGIA
     Dosage: 15 MG
     Route: 048
     Dates: start: 20090610, end: 20090615

REACTIONS (1)
  - RECTAL HAEMORRHAGE [None]
